FAERS Safety Report 21598997 (Version 1)
Quarter: 2022Q4

REPORT INFORMATION
  Report Type: Spontaneous
  Country: US (occurrence: None)
  Receive Date: 20221115
  Receipt Date: 20221115
  Transmission Date: 20230113
  Serious: Yes (Disabling)
  Sender: FDA-Public Use
  Company Number: None

PATIENT
  Age: 27 Year
  Sex: Male
  Weight: 77 kg

DRUGS (1)
  1. PROPECIA [Suspect]
     Active Substance: FINASTERIDE
     Indication: Androgenetic alopecia
     Dosage: OTHER QUANTITY : 1 TABLET(S);?OTHER FREQUENCY : EVERY SECOND DAY;?
     Route: 048
     Dates: start: 20211001, end: 20220801

REACTIONS (12)
  - Insomnia [None]
  - Fatigue [None]
  - Depression [None]
  - Suicidal ideation [None]
  - Feeling abnormal [None]
  - Disturbance in attention [None]
  - Gastric disorder [None]
  - Dyspepsia [None]
  - Heart rate increased [None]
  - Fatigue [None]
  - Muscle atrophy [None]
  - Libido decreased [None]

NARRATIVE: CASE EVENT DATE: 20220814
